FAERS Safety Report 24778191 (Version 1)
Quarter: 2024Q4

REPORT INFORMATION
  Report Type: Spontaneous
  Country: DE (occurrence: None)
  Receive Date: 20241225
  Receipt Date: 20241225
  Transmission Date: 20250115
  Serious: Yes (Disabling)
  Sender: Public
  Company Number: None

PATIENT
  Age: 38 Year
  Sex: Male
  Weight: 110 kg

DRUGS (11)
  1. RISPERIDONE [Suspect]
     Active Substance: RISPERIDONE
     Indication: Mental disorder
     Dates: start: 20151208, end: 20160226
  2. RISPERIDONE [Suspect]
     Active Substance: RISPERIDONE
     Indication: Personality disorder
  3. ABILIFY [Concomitant]
     Active Substance: ARIPIPRAZOLE
  4. FLUOXETINE [Concomitant]
     Active Substance: FLUOXETINE HYDROCHLORIDE
  5. MIRTAZAPINE [Concomitant]
     Active Substance: MIRTAZAPINE
  6. TAMSULOSIN [Concomitant]
     Active Substance: TAMSULOSIN
  7. VITAMINS [Concomitant]
     Active Substance: VITAMINS
  8. Acetyl-l-cysteine [Concomitant]
  9. MAGNESIUM [Concomitant]
     Active Substance: MAGNESIUM
  10. Alpha-GPC [Concomitant]
  11. HUPERZINE A [Concomitant]
     Active Substance: HUPERZINE A

REACTIONS (5)
  - Akathisia [None]
  - Product prescribing issue [None]
  - Genital hypoaesthesia [None]
  - Stress [None]
  - Sexual dysfunction [None]

NARRATIVE: CASE EVENT DATE: 20151208
